FAERS Safety Report 6619340-0 (Version None)
Quarter: 2010Q1

REPORT INFORMATION
  Report Type: 
  Country: None (occurrence: None)
  Receive Date: 20100308
  Receipt Date: 20090413
  Transmission Date: 20100710
  Serious: No
  Sender: FDA-Public Use
  Company Number: US-TYCO HEALTHCARE/MALLINCKRODT-T200900871

PATIENT
  Sex: Male

DRUGS (3)
  1. RESTORIL [Suspect]
     Indication: DRUG USE FOR UNKNOWN INDICATION
     Dosage: 30 MG, 1X/DAY:QD
     Route: 048
  2. VYVANSE [Interacting]
     Indication: DRUG USE FOR UNKNOWN INDICATION
     Dosage: 60 MG, 1X/DAY:QD
     Route: 048
  3. GEODON [Interacting]
     Indication: DRUG USE FOR UNKNOWN INDICATION
     Dosage: 80 MG, 2X/DAY:BID
     Route: 048

REACTIONS (6)
  - AFFECT LABILITY [None]
  - DRUG INTERACTION [None]
  - INCREASED APPETITE [None]
  - IRRITABILITY [None]
  - PAIN [None]
  - WEIGHT INCREASED [None]
